FAERS Safety Report 8299707 (Version 2)
Quarter: 2013Q3

REPORT INFORMATION
  Report Type: Spontaneous
  Country: US (occurrence: US)
  Receive Date: 20111219
  Receipt Date: 20130924
  Transmission Date: 20140515
  Serious: No
  Sender: FDA-Public Use
  Company Number: US-ALLERGAN-0901344US

PATIENT
  Age: 61 Year
  Sex: Female

DRUGS (3)
  1. LUMIGAN [Suspect]
     Indication: OCULAR HYPERTENSION
     Dosage: 1 GTT, QHS
     Route: 047
     Dates: start: 200901
  2. VASORELIC [Concomitant]
     Indication: HYPERTENSION
  3. LUMIGAN 0.01% [Suspect]
     Indication: OCULAR HYPERTENSION

REACTIONS (3)
  - Eyelid irritation [Unknown]
  - Ocular hyperaemia [Recovered/Resolved]
  - Drug ineffective [Unknown]
